FAERS Safety Report 7052790-X (Version None)
Quarter: 2010Q4

REPORT INFORMATION
  Report Type: 
  Country: None (occurrence: None)
  Receive Date: 20101019
  Receipt Date: 20100928
  Transmission Date: 20110411
  Serious: No
  Sender: FDA-Public Use
  Company Number: US-MYLANLABS-2010S1017923

PATIENT
  Age: 52 Year
  Sex: Male

DRUGS (3)
  1. CLONIDINE [Suspect]
     Indication: BLOOD PRESSURE INCREASED
     Dosage: QWKLY
     Route: 062
     Dates: start: 20100101
  2. COREG [Concomitant]
     Indication: BLOOD PRESSURE INCREASED
  3. GABAPENTIN [Concomitant]

REACTIONS (2)
  - BLOOD PRESSURE INCREASED [None]
  - DRUG INEFFECTIVE [None]
